FAERS Safety Report 9392236 (Version 2)
Quarter: 2014Q1

REPORT INFORMATION
  Report Type: Report from Study
  Country: DE (occurrence: DE)
  Receive Date: 20130710
  Receipt Date: 20140122
  Transmission Date: 20141002
  Serious: Yes (Hospitalization)
  Sender: FDA-Public Use
  Company Number: DE-ROCHE-1245744

PATIENT
  Age: 61 Year
  Sex: Female

DRUGS (3)
  1. VEMURAFENIB [Suspect]
     Indication: PLASMACYTOMA
     Route: 065
  2. VEMURAFENIB [Suspect]
     Indication: OFF LABEL USE
     Route: 065
  3. VEMURAFENIB [Suspect]
     Route: 065

REACTIONS (4)
  - Pneumonia [Recovered/Resolved]
  - Arthralgia [Unknown]
  - Pain [Unknown]
  - Tremor [Unknown]
